FAERS Safety Report 23176672 (Version 3)
Quarter: 2023Q4

REPORT INFORMATION
  Report Type: Spontaneous
  Country: US (occurrence: US)
  Receive Date: 20231113
  Receipt Date: 20231228
  Transmission Date: 20240110
  Serious: Yes (Other)
  Sender: FDA-Public Use
  Company Number: US-PFIZER INC-202300359184

PATIENT
  Age: 63 Year
  Sex: Female
  Weight: 61.224 kg

DRUGS (2)
  1. ESTRING [Suspect]
     Active Substance: ESTRADIOL
     Indication: Menopausal symptoms
     Dosage: 2 MG ESTRADIOL TO DELIVER 7.5 MCG OF ESTRADIOL PER DAY OVER 90 DAYS
     Route: 067
     Dates: start: 202207
  2. ESTRING [Suspect]
     Active Substance: ESTRADIOL
     Indication: Vulvovaginal dryness

REACTIONS (4)
  - Vulvovaginal injury [Unknown]
  - Vaginal haemorrhage [Unknown]
  - Product packaging issue [Unknown]
  - Device difficult to use [Unknown]
